FAERS Safety Report 5217080-6 (Version None)
Quarter: 2007Q1

REPORT INFORMATION
  Report Type: 
  Country: None (occurrence: None)
  Receive Date: 20070124
  Receipt Date: 20070115
  Transmission Date: 20070707
  Serious: Yes (Hospitalization, Other)
  Sender: FDA-Public Use
  Company Number: US-ELI_LILLY_AND_COMPANY-US200611002101

PATIENT
  Age: 87 Year
  Sex: Female
  Weight: 54.421 kg

DRUGS (6)
  1. FORTEO [Suspect]
     Dates: start: 20060901
  2. AVAPRO [Concomitant]
     Indication: HYPERTENSION
     Dosage: 300 MG, DAILY (1/D)
  3. PRAVACHOL [Concomitant]
     Indication: BLOOD CHOLESTEROL INCREASED
     Dosage: 400 MG, 2/D
  4. VERPAMIL [Concomitant]
  5. LASIX [Concomitant]
  6. PLAVIX                                  /UNK/ [Concomitant]

REACTIONS (7)
  - BRADYCARDIA [None]
  - CARDIAC FIBRILLATION [None]
  - DIZZINESS [None]
  - INJECTION SITE PAIN [None]
  - LOSS OF CONSCIOUSNESS [None]
  - PACEMAKER COMPLICATION [None]
  - PHARMACEUTICAL PRODUCT COMPLAINT [None]
